FAERS Safety Report 16449072 (Version 1)
Quarter: 2019Q2

REPORT INFORMATION
  Report Type: Spontaneous
  Country: US (occurrence: US)
  Receive Date: 20190619
  Receipt Date: 20190619
  Transmission Date: 20190711
  Serious: No
  Sender: FDA-Public Use
  Company Number: US-ELI_LILLY_AND_COMPANY-US201906008888

PATIENT
  Sex: Female

DRUGS (6)
  1. HUMULIN R U-500 [Suspect]
     Active Substance: INSULIN HUMAN
     Dosage: 15 U, DAILY (NIGHT)
     Route: 065
  2. HUMULIN R U-500 [Suspect]
     Active Substance: INSULIN HUMAN
     Dosage: 145 U, DAILY (IN AFTERNOON)
     Route: 065
  3. HUMULIN R U-500 [Suspect]
     Active Substance: INSULIN HUMAN
     Dosage: 145 U, DAILY (IN AFTERNOON)
     Route: 065
     Dates: start: 2018
  4. HUMULIN R U-500 [Suspect]
     Active Substance: INSULIN HUMAN
     Dosage: 15 U, DAILY (NIGHT)
     Route: 065
     Dates: start: 2018
  5. HUMULIN R U-500 [Suspect]
     Active Substance: INSULIN HUMAN
     Indication: TYPE 2 DIABETES MELLITUS
     Dosage: 155 U, EACH MORNING
     Route: 065
     Dates: start: 2018
  6. HUMULIN R U-500 [Suspect]
     Active Substance: INSULIN HUMAN
     Dosage: 155 U, EACH MORNING
     Route: 065

REACTIONS (4)
  - Insulin resistance [Not Recovered/Not Resolved]
  - Blood glucose increased [Unknown]
  - Product dose omission [Unknown]
  - Incorrect dose administered [Unknown]
